FAERS Safety Report 24127214 (Version 1)
Quarter: 2024Q3

REPORT INFORMATION
  Report Type: Spontaneous
  Country: US (occurrence: US)
  Receive Date: 20240723
  Receipt Date: 20240723
  Transmission Date: 20241017
  Serious: No
  Sender: BAYER
  Company Number: US-BAYER-2024A104256

PATIENT
  Age: 32 Year
  Sex: Female

DRUGS (1)
  1. MIRENA [Suspect]
     Active Substance: LEVONORGESTREL
     Dosage: 20?G/DAY
     Route: 015
     Dates: start: 201711

REACTIONS (8)
  - Fatigue [None]
  - Hot flush [None]
  - Mood swings [None]
  - Anxiety [None]
  - Vaginal haemorrhage [None]
  - Vulvovaginal dryness [None]
  - Amenorrhoea [Recovered/Resolved]
  - Cervical dysplasia [None]

NARRATIVE: CASE EVENT DATE: 20221201
